FAERS Safety Report 10158386 (Version 2)
Quarter: 2014Q2

REPORT INFORMATION
  Report Type: Spontaneous
  Country: ES (occurrence: ES)
  Receive Date: 20140507
  Receipt Date: 20140516
  Transmission Date: 20141212
  Serious: Yes (Hospitalization)
  Sender: FDA-Public Use
  Company Number: ES-ABBVIE-14P-144-1231326-00

PATIENT
  Age: 65 Year
  Sex: Female

DRUGS (2)
  1. HUMIRA [Suspect]
     Indication: RHEUMATOID ARTHRITIS
     Route: 058
     Dates: start: 19990101, end: 20140221
  2. METHOTREXATE [Suspect]
     Indication: RHEUMATOID ARTHRITIS
     Route: 058
     Dates: start: 19990101, end: 20140221

REACTIONS (4)
  - Neutropenia [Recovered/Resolved]
  - Anaemia [Recovered/Resolved]
  - Pancytopenia [Recovered/Resolved]
  - Thrombocytopenia [Recovered/Resolved]
